FAERS Safety Report 9340463 (Version 3)
Quarter: 2013Q3

REPORT INFORMATION
  Report Type: Spontaneous
  Country: DE (occurrence: DE)
  Receive Date: 20130610
  Receipt Date: 20130717
  Transmission Date: 20140515
  Serious: Yes (Hospitalization, Other)
  Sender: FDA-Public Use
  Company Number: DE-INCYTE CORPORATION-2013IN001116

PATIENT
  Sex: Male
  Weight: 75 kg

DRUGS (4)
  1. JAKAVI [Suspect]
     Indication: MYELOFIBROSIS
     Dosage: 10 MG, BID
     Route: 048
     Dates: start: 20120121
  2. JAKAVI [Suspect]
     Dosage: 15 MG, BID
     Route: 065
     Dates: end: 20130424
  3. SYREA [Concomitant]
     Indication: MYELOFIBROSIS
     Dosage: 500 MG, FOR ONE DAY
     Route: 065
  4. SYREA [Concomitant]
     Indication: BLAST CELL PROLIFERATION

REACTIONS (2)
  - Epstein-Barr virus infection [Not Recovered/Not Resolved]
  - Leukaemia [Unknown]
